FAERS Safety Report 9338096 (Version 1)
Quarter: 2013Q2

REPORT INFORMATION
  Report Type: Spontaneous
  Country: GR (occurrence: GR)
  Receive Date: 20130610
  Receipt Date: 20130610
  Transmission Date: 20140414
  Serious: Yes (Other)
  Sender: FDA-Public Use
  Company Number: GR-ROCHE-1234342

PATIENT
  Age: 28 Year
  Sex: 0
  Weight: 45 kg

DRUGS (3)
  1. PEGASYS [Suspect]
     Indication: HEPATITIS C
     Route: 065
  2. PEGASYS [Suspect]
     Route: 065
  3. COPEGUS [Suspect]
     Indication: HEPATITIS C
     Route: 065

REACTIONS (2)
  - Influenza like illness [Not Recovered/Not Resolved]
  - White blood cell count decreased [Not Recovered/Not Resolved]
